FAERS Safety Report 14400657 (Version 2)
Quarter: 2018Q1

REPORT INFORMATION
  Report Type: Spontaneous
  Country: US (occurrence: US)
  Receive Date: 20180117
  Receipt Date: 20180327
  Transmission Date: 20180509
  Serious: No
  Sender: FDA-Public Use
  Company Number: US-ASTRAZENECA-2018SE06020

PATIENT
  Sex: Male
  Weight: 81.6 kg

DRUGS (3)
  1. PULMICORT FLEXHALER [Suspect]
     Active Substance: BUDESONIDE
     Indication: INFLUENZA
     Route: 055
     Dates: start: 20180104
  2. PULMICORT FLEXHALER [Suspect]
     Active Substance: BUDESONIDE
     Indication: PRODUCTIVE COUGH
     Route: 055
     Dates: start: 20180104
  3. ALBUTEROL. [Concomitant]
     Active Substance: ALBUTEROL
     Indication: PRODUCTIVE COUGH
     Dosage: DAILY
     Route: 055

REACTIONS (7)
  - Influenza [Unknown]
  - Nasal congestion [Unknown]
  - Intentional product misuse [Unknown]
  - Off label use [Unknown]
  - Product use in unapproved indication [Unknown]
  - Drug dose omission [Unknown]
  - Device failure [Unknown]
